FAERS Safety Report 8016078-2 (Version None)
Quarter: 2011Q4

REPORT INFORMATION
  Report Type: 
  Country: None (occurrence: None)
  Receive Date: 20111230
  Receipt Date: 20111219
  Transmission Date: 20120403
  Serious: Yes (Other)
  Sender: FDA-Public Use
  Company Number: BR-SANOFI-AVENTIS-2011SA083351

PATIENT
  Sex: Male

DRUGS (7)
  1. CLOPIDOGREL [Concomitant]
     Route: 048
  2. CILOSTAZOL [Concomitant]
     Route: 048
  3. LANTUS [Suspect]
     Route: 058
     Dates: start: 20080101
  4. SOLOSTAR [Suspect]
     Indication: DEVICE THERAPY
     Dates: start: 20080101
  5. LOSARTAN POTASSIUM [Concomitant]
     Indication: BLOOD PRESSURE
     Route: 048
  6. ROSUVASTATIN CALCIUM [Concomitant]
     Route: 048
  7. AMARYL [Concomitant]
     Route: 048

REACTIONS (5)
  - WOUND [None]
  - POOR PERIPHERAL CIRCULATION [None]
  - SKIN FISSURES [None]
  - IMPAIRED HEALING [None]
  - VEIN DISORDER [None]
